FAERS Safety Report 6774572-6 (Version None)
Quarter: 2010Q2

REPORT INFORMATION
  Report Type: 
  Country: None (occurrence: None)
  Receive Date: 20100617
  Receipt Date: 20100614
  Transmission Date: 20101027
  Serious: Yes (Other)
  Sender: FDA-Public Use
  Company Number: US-RB-002839-10

PATIENT
  Age: 47 Year
  Sex: Female

DRUGS (2)
  1. SUBOXONE [Suspect]
     Dosage: UNKNOWN DOSING DETAILS
     Route: 060
     Dates: start: 20100201
  2. DILANTIN [Concomitant]
     Dosage: DOSING INFORMATION UNKNOWN.
     Route: 048
     Dates: start: 19900101

REACTIONS (6)
  - ABDOMINAL PAIN UPPER [None]
  - CONVULSION [None]
  - DEPRESSION [None]
  - DRUG DEPENDENCE [None]
  - INSOMNIA [None]
  - SUICIDAL IDEATION [None]
